FAERS Safety Report 10004045 (Version 2)
Quarter: 2014Q3

REPORT INFORMATION
  Report Type: Spontaneous
  Country: US (occurrence: US)
  Receive Date: 20140312
  Receipt Date: 20140715
  Transmission Date: 20150326
  Serious: Yes (Other)
  Sender: FDA-Public Use
  Company Number: US-INCYTE CORPORATION-2014IN000256

PATIENT
  Age: 26 Year
  Sex: Female

DRUGS (5)
  1. JAKAFI [Suspect]
     Active Substance: RUXOLITINIB
     Indication: MYELOFIBROSIS
     Dosage: 15 MG, BID
     Route: 048
  2. JAKAFI [Suspect]
     Active Substance: RUXOLITINIB
     Dosage: 15 MG, QD
     Route: 048
  3. LUNESTA [Concomitant]
     Active Substance: ESZOPICLONE
  4. COUMADIN [Concomitant]
     Active Substance: WARFARIN SODIUM
  5. JAKAFI [Suspect]
     Active Substance: RUXOLITINIB
     Dosage: 15 MG, BID
     Route: 048
     Dates: end: 201402

REACTIONS (7)
  - Rash [Unknown]
  - Discomfort [Unknown]
  - Constipation [Unknown]
  - Skin disorder [Unknown]
  - Skin sensitisation [Unknown]
  - Blister [Unknown]
  - Jaundice [Unknown]

NARRATIVE: CASE EVENT DATE: 201401
